FAERS Safety Report 9603146 (Version 1)
Quarter: 2013Q4

REPORT INFORMATION
  Report Type: Spontaneous
  Country: JP (occurrence: JP)
  Receive Date: 20131007
  Receipt Date: 20131007
  Transmission Date: 20140711
  Serious: Yes (Hospitalization)
  Sender: FDA-Public Use
  Company Number: JP-SA-2013SA098793

PATIENT
  Age: 73 Year
  Sex: Male
  Weight: 55 kg

DRUGS (12)
  1. PLAVIX [Suspect]
     Indication: ANGINA PECTORIS
     Route: 048
     Dates: end: 20110713
  2. LANSOPRAZOLE [Concomitant]
     Indication: PROPHYLAXIS AGAINST GASTROINTESTINAL ULCER
     Route: 048
     Dates: start: 20110701
  3. BAYASPIRIN [Concomitant]
  4. LIVALO [Concomitant]
  5. RENIVACE [Concomitant]
  6. LASIX [Concomitant]
  7. ALDACTONE-A [Concomitant]
  8. ARTIST [Concomitant]
     Dates: start: 20110713
  9. SIGMART [Concomitant]
     Dates: start: 20111210
  10. LANTUS [Concomitant]
  11. HUMALOG [Concomitant]
  12. MAGLAX [Concomitant]
     Dates: start: 20111213

REACTIONS (3)
  - Chest pain [Recovering/Resolving]
  - Aspartate aminotransferase increased [Recovered/Resolved]
  - Alanine aminotransferase increased [Recovered/Resolved]
